FAERS Safety Report 9002541 (Version 1)
Quarter: 2013Q1

REPORT INFORMATION
  Report Type: Report from Study
  Country: US (occurrence: US)
  Receive Date: 20130107
  Receipt Date: 20130107
  Transmission Date: 20140127
  Serious: Yes (Other)
  Sender: FDA-Public Use
  Company Number: US-JNJFOC-20121213997

PATIENT
  Age: 79 None
  Sex: Female
  Weight: 55.34 kg

DRUGS (4)
  1. REMICADE [Suspect]
     Indication: RHEUMATOID ARTHRITIS
     Route: 042
     Dates: start: 2003
  2. HYDROXYCHLORAQUINE [Suspect]
     Indication: RHEUMATOID ARTHRITIS
     Route: 065
     Dates: start: 2006
  3. SYNTHROID [Concomitant]
     Indication: HYPOTHYROIDISM
     Route: 048
  4. ARAVA [Concomitant]
     Indication: RHEUMATOID ARTHRITIS
     Route: 048
     Dates: start: 199909

REACTIONS (10)
  - Blood pressure increased [Unknown]
  - Vitamin D deficiency [Unknown]
  - Nodule [Unknown]
  - Laceration [Not Recovered/Not Resolved]
  - Wound [Not Recovered/Not Resolved]
  - Wound haemorrhage [Not Recovered/Not Resolved]
  - Local swelling [Not Recovered/Not Resolved]
  - Joint swelling [Not Recovered/Not Resolved]
  - Shock [Not Recovered/Not Resolved]
  - Rash [Not Recovered/Not Resolved]
